FAERS Safety Report 8583740 (Version 4)
Quarter: 2012Q4

REPORT INFORMATION
  Report Type: Report from Study
  Country: JP (occurrence: JP)
  Receive Date: 20120529
  Receipt Date: 20121016
  Transmission Date: 20130627
  Serious: Yes (Other)
  Sender: FDA-Public Use
  Company Number: JP-GLAXOSMITHKLINE-B0803928A

PATIENT
  Age: 46 None
  Sex: Female
  Weight: 61 kg

DRUGS (7)
  1. TYKERB [Suspect]
     Indication: BREAST CANCER
     Dosage: 1500MG Per day
     Route: 048
     Dates: start: 20081216, end: 20091214
  2. TAMOXIFEN [Suspect]
     Indication: BREAST CANCER
     Dosage: 20MG Per day
     Route: 048
     Dates: start: 20090630, end: 20120319
  3. HERCEPTIN [Suspect]
     Indication: BREAST CANCER
     Route: 042
     Dates: start: 20111220, end: 20111220
  4. HERCEPTIN [Suspect]
     Indication: BREAST CANCER
     Route: 042
     Dates: start: 20120110
  5. EPIRUBICIN HYDROCHLORIDE [Suspect]
     Indication: ADJUVANT THERAPY
     Route: 042
     Dates: start: 20080422, end: 20080624
  6. CYCLOPHOSPHAMIDE [Suspect]
     Indication: ADJUVANT THERAPY
     Route: 042
     Dates: start: 20080422, end: 20080624
  7. DOCETAXEL [Suspect]
     Indication: ADJUVANT THERAPY
     Route: 042
     Dates: start: 20080722, end: 20080925

REACTIONS (1)
  - Gastric cancer [Recovered/Resolved]
